FAERS Safety Report 24075734 (Version 5)
Quarter: 2024Q4

REPORT INFORMATION
  Report Type: Spontaneous
  Country: JP (occurrence: JP)
  Receive Date: 20240710
  Receipt Date: 20241002
  Transmission Date: 20250115
  Serious: No
  Sender: EISAI
  Company Number: JP-Eisai-202403669_LEN-RCC_P_1

PATIENT
  Age: 79 Year
  Sex: Male

DRUGS (5)
  1. LENVIMA [Suspect]
     Active Substance: LENVATINIB
     Indication: Transitional cell carcinoma
     Route: 048
     Dates: start: 20240611, end: 20240621
  2. LENVIMA [Suspect]
     Active Substance: LENVATINIB
     Dosage: DOSE AND FREQUENCY UNKNOWN
     Route: 048
     Dates: start: 2024, end: 2024
  3. LENVIMA [Suspect]
     Active Substance: LENVATINIB
     Dosage: DOSE REDUCED (DOSE AND FREQUENCY UNKNOWN)
     Route: 048
     Dates: start: 2024, end: 2024
  4. LENVIMA [Suspect]
     Active Substance: LENVATINIB
     Route: 048
     Dates: start: 2024, end: 2024
  5. KEYTRUDA [Concomitant]
     Active Substance: PEMBROLIZUMAB
     Indication: Transitional cell carcinoma
     Route: 042
     Dates: start: 20240611, end: 2024

REACTIONS (8)
  - Decreased appetite [Recovering/Resolving]
  - Urine output decreased [Unknown]
  - Taste disorder [Not Recovered/Not Resolved]
  - Pyrexia [Recovering/Resolving]
  - Renal impairment [Recovered/Resolved]
  - C-reactive protein increased [Recovered/Resolved]
  - Nausea [Recovering/Resolving]
  - Off label use [Unknown]

NARRATIVE: CASE EVENT DATE: 20240101
